FAERS Safety Report 11150840 (Version 2)
Quarter: 2015Q2

REPORT INFORMATION
  Report Type: Other
  Country: US (occurrence: US)
  Receive Date: 20150601
  Receipt Date: 20150619
  Transmission Date: 20150821
  Serious: Yes (Hospitalization, Other)
  Sender: FDA-Public Use
  Company Number: US-SHIRE-US201504475

PATIENT
  Sex: Male

DRUGS (1)
  1. FOSRENOL [Suspect]
     Active Substance: LANTHANUM CARBONATE
     Indication: HYPERPHOSPHATAEMIA
     Dosage: 2000 MG, 3X/DAY:TID (WITH MEALS)
     Route: 048
     Dates: end: 20150226

REACTIONS (2)
  - Renal failure [Recovered/Resolved]
  - Prescribed overdose [Recovered/Resolved]
